FAERS Safety Report 5486024-4 (Version None)
Quarter: 2007Q4

REPORT INFORMATION
  Report Type: 
  Country: None (occurrence: None)
  Receive Date: 20071012
  Receipt Date: 20071010
  Transmission Date: 20080405
  Serious: Yes (Hospitalization)
  Sender: FDA-Public Use
  Company Number: 2007SP020439

PATIENT
  Age: 53 Year
  Sex: Female

DRUGS (1)
  1. DIPROSTENE (BETAMETHASONE SODIUM PHOSPHATE/DIPROPIONATE) (BETAMETHASON [Suspect]
     Indication: TENDONITIS
     Dosage: ; ONCE;
     Dates: start: 20070920, end: 20070920

REACTIONS (3)
  - HYPOTENSION [None]
  - OEDEMA PERIPHERAL [None]
  - PRURITUS [None]
